FAERS Safety Report 20841016 (Version 7)
Quarter: 2023Q2

REPORT INFORMATION
  Report Type: Spontaneous
  Country: US (occurrence: US)
  Receive Date: 20220517
  Receipt Date: 20230515
  Transmission Date: 20230721
  Serious: Yes (Other)
  Sender: FDA-Public Use
  Company Number: US-PFIZER INC-202200630327

PATIENT
  Age: 73 Year
  Sex: Female

DRUGS (1)
  1. IBRANCE [Suspect]
     Active Substance: PALBOCICLIB
     Dosage: 125 MG

REACTIONS (9)
  - Lower limb fracture [Unknown]
  - Gait disturbance [Unknown]
  - Animal scratch [Unknown]
  - Wound infection bacterial [Unknown]
  - Escherichia infection [Unknown]
  - Radiation injury [Unknown]
  - Hypoacusis [Unknown]
  - Impaired healing [Unknown]
  - Arthralgia [Unknown]

NARRATIVE: CASE EVENT DATE: 20210101
